FAERS Safety Report 9757572 (Version 4)
Quarter: 2015Q1

REPORT INFORMATION
  Report Type: Report from Study
  Country: BR (occurrence: BR)
  Receive Date: 20131216
  Receipt Date: 20150113
  Transmission Date: 20150721
  Serious: Yes (Other)
  Sender: FDA-Public Use
  Company Number: BR-ROCHE-1317786

PATIENT
  Sex: Female
  Weight: 55 kg

DRUGS (8)
  1. PRELONE [Concomitant]
     Active Substance: PREDNISOLONE
  2. ROSUVASTATIN [Concomitant]
     Active Substance: ROSUVASTATIN
  3. METHOTREXATE [Concomitant]
     Active Substance: METHOTREXATE
  4. LISADOR [Concomitant]
     Active Substance: DIPYRONE\PROMETHAZINE HYDROCHLORIDE
     Indication: PAIN
  5. NIMESULIDA [Concomitant]
     Active Substance: NIMESULIDE
  6. ALDACTONE (BRAZIL) [Concomitant]
  7. ACTEMRA [Suspect]
     Active Substance: TOCILIZUMAB
     Indication: RHEUMATOID ARTHRITIS
     Route: 042
     Dates: start: 20131119
  8. ATENOLOL. [Concomitant]
     Active Substance: ATENOLOL
     Route: 065

REACTIONS (6)
  - Therapeutic response decreased [Unknown]
  - Choking sensation [Recovered/Resolved]
  - Fatigue [Recovered/Resolved]
  - Foot deformity [Not Recovered/Not Resolved]
  - Swelling [Recovered/Resolved]
  - Foot deformity [Unknown]
